FAERS Safety Report 5500414-2 (Version None)
Quarter: 2007Q4

REPORT INFORMATION
  Report Type: 
  Country: None (occurrence: None)
  Receive Date: 20071018
  Receipt Date: 20070502
  Transmission Date: 20080405
  Serious: Yes (Other)
  Sender: FDA-Public Use
  Company Number: 2007036860

PATIENT
  Age: 51 Year

DRUGS (1)
  1. NEURONTIN [Suspect]
     Indication: BACK PAIN
     Dates: start: 19970101

REACTIONS (2)
  - BLOOD PRESSURE INCREASED [None]
  - WEIGHT INCREASED [None]
